FAERS Safety Report 24122971 (Version 2)
Quarter: 2024Q3

REPORT INFORMATION
  Report Type: Spontaneous
  Country: US (occurrence: US)
  Receive Date: 20240723
  Receipt Date: 20240727
  Transmission Date: 20241017
  Serious: No
  Sender: ABBVIE
  Company Number: US-ABBVIE-5847088

PATIENT
  Sex: Female

DRUGS (1)
  1. ARMOUR THYROID [Suspect]
     Active Substance: THYROID, PORCINE
     Indication: Product used for unknown indication
     Dosage: FORM STRENGTH; 120 MG
     Route: 048

REACTIONS (7)
  - Diarrhoea [Unknown]
  - Adverse drug reaction [Unknown]
  - Nausea [Unknown]
  - Anxiety [Unknown]
  - Product quality issue [Not Recovered/Not Resolved]
  - Blood pressure abnormal [Unknown]
  - Dizziness [Unknown]
